FAERS Safety Report 18581311 (Version 1)
Quarter: 2020Q4

REPORT INFORMATION
  Report Type: Report from Study
  Country: US (occurrence: US)
  Receive Date: 20201204
  Receipt Date: 20201204
  Transmission Date: 20210114
  Serious: Yes (Death)
  Sender: FDA-Public Use
  Company Number: US-MYLANLABS-2020M1099625

PATIENT
  Age: 74 Year

DRUGS (12)
  1. PREDNISONE. [Suspect]
     Active Substance: PREDNISONE
     Indication: BURKITT^S LYMPHOMA
     Dosage: 60 MILLIGRAM/SQ. METER, BID, ON DAYS 1,2, 3, 4 AND 5
     Route: 048
  2. OMEPRAZOLE. [Concomitant]
     Active Substance: OMEPRAZOLE
     Indication: PROPHYLAXIS
     Dosage: 20 MILLIGRAM, QD
     Route: 048
  3. SENNA ALATA STEM [Concomitant]
     Indication: CONSTIPATION PROPHYLAXIS
     Dosage: 2 DOSAGE FORM, BID
     Route: 048
  4. RITUXIMAB. [Suspect]
     Active Substance: RITUXIMAB
     Indication: BURKITT^S LYMPHOMA
     Dosage: 375 MILLIGRAM/SQ. METER, CYCLE, ON DAY 1 OF 21 DAY CYCLE
     Route: 042
  5. CYCLOPHOSPHAMIDE. [Suspect]
     Active Substance: CYCLOPHOSPHAMIDE
     Indication: BURKITT^S LYMPHOMA
     Dosage: 750 MILLIGRAM/SQ. METER, CYCLE, ON DAY 5
     Route: 042
  6. DOCUSATE [Concomitant]
     Active Substance: DOCUSATE
     Indication: CONSTIPATION PROPHYLAXIS
     Route: 065
  7. DOXORUBICIN [Suspect]
     Active Substance: DOXORUBICIN
     Indication: BURKITT^S LYMPHOMA
     Dosage: 10 MILLIGRAM/SQ. METER, CYCLE, ON DAYS 1,2 3 AND 4
     Route: 042
  8. BACTRIM [Concomitant]
     Active Substance: SULFAMETHOXAZOLE\TRIMETHOPRIM
     Indication: ANTIFUNGAL PROPHYLAXIS
     Dosage: DS 1 TABLET THREE TIMES A WEEK
     Route: 065
  9. VINCRISTINE [Suspect]
     Active Substance: VINCRISTINE
     Indication: BURKITT^S LYMPHOMA
     Dosage: 0.4 MILLIGRAM/SQ. METER, CYCLE, ON DAYS 1,2, 3 AND 4
     Route: 042
  10. FILGRASTIM [Concomitant]
     Active Substance: FILGRASTIM
     Indication: PROPHYLAXIS
     Dosage: 480 MICROGRAM, QD
     Route: 058
  11. LACTULOSE. [Concomitant]
     Active Substance: LACTULOSE
     Indication: CONSTIPATION PROPHYLAXIS
     Dosage: 20 GMS Q6
     Route: 048
  12. ETOPOSIDE. [Suspect]
     Active Substance: ETOPOSIDE
     Indication: BURKITT^S LYMPHOMA
     Dosage: 50 MILLIGRAM/SQ. METER, CYCLE, ON DAYS 1,2 3 AND 4 OF 21 DAY CYCLE
     Route: 042

REACTIONS (1)
  - Respiratory failure [Fatal]
